FAERS Safety Report 5195574-X (Version None)
Quarter: 2006Q4

REPORT INFORMATION
  Report Type: 
  Country: None (occurrence: None)
  Receive Date: 20061226
  Receipt Date: 20061226
  Transmission Date: 20070319
  Serious: No
  Sender: FDA-Public Use
  Company Number: None

PATIENT
  Age: 7 Year
  Sex: Female
  Weight: 18.1439 kg

DRUGS (1)
  1. CEFADROXIL [Suspect]
     Indication: SKIN INFECTION
     Dosage: 1 TSP 2 X DAY PO
     Route: 048
     Dates: start: 20061215, end: 20061223

REACTIONS (1)
  - TOOTH DISCOLOURATION [None]
